FAERS Safety Report 9381609 (Version 1)
Quarter: 2013Q3

REPORT INFORMATION
  Report Type: Spontaneous
  Country: US (occurrence: US)
  Receive Date: 20130703
  Receipt Date: 20130703
  Transmission Date: 20140515
  Serious: Yes (Other)
  Sender: FDA-Public Use
  Company Number: US-JNJFOC-20130618821

PATIENT
  Sex: Female

DRUGS (21)
  1. XARELTO [Suspect]
     Indication: THROMBOSIS PROPHYLAXIS
     Route: 048
  2. TRAMADOL [Concomitant]
     Route: 065
  3. OMEPRAZOLE [Concomitant]
     Route: 065
  4. HUMALOG [Concomitant]
     Route: 065
  5. AMLODIPINE [Concomitant]
     Route: 065
  6. GABAPENTIN [Concomitant]
     Route: 065
  7. METFORMIN [Concomitant]
     Route: 065
  8. CYMBALTA [Concomitant]
     Route: 065
  9. METOPROLOL [Concomitant]
     Route: 065
  10. SINGULAIR [Concomitant]
     Route: 065
  11. SIMVASTATIN [Concomitant]
     Route: 065
  12. ROBAXIN [Concomitant]
     Route: 065
  13. LEVEMIR [Concomitant]
     Dosage: 100 UNITS/ML
     Route: 065
  14. LASIX [Concomitant]
     Route: 065
  15. GLIMEPIRIDE [Concomitant]
     Route: 065
  16. GABAPENTIN [Concomitant]
     Route: 065
  17. CELEBREX [Concomitant]
     Route: 065
  18. WARFARIN [Concomitant]
     Route: 065
  19. COMBIVENT [Concomitant]
     Dosage: 20-100MCG
     Route: 065
  20. ASTELIN [Concomitant]
     Dosage: 137 UG/SPRAY SOLUTION
     Route: 065
  21. ADVAIR DISKUS [Concomitant]
     Route: 065

REACTIONS (1)
  - Eye pain [Unknown]
